FAERS Safety Report 5727167-7 (Version None)
Quarter: 2008Q2

REPORT INFORMATION
  Report Type: 
  Country: None (occurrence: None)
  Receive Date: 20080505
  Receipt Date: 20080424
  Transmission Date: 20081010
  Serious: Yes (Other)
  Sender: FDA-Public Use
  Company Number: PHBS2008BE02872

PATIENT
  Sex: Female
  Weight: 90 kg

DRUGS (1)
  1. CYCLOSPORINE [Suspect]
     Indication: PSORIASIS
     Dosage: 250 MG/KG
     Dates: end: 20070401

REACTIONS (5)
  - FATIGUE [None]
  - MUSCLE SPASMS [None]
  - PARAESTHESIA [None]
  - TREMOR [None]
  - WEIGHT INCREASED [None]
